FAERS Safety Report 14260671 (Version 5)
Quarter: 2018Q1

REPORT INFORMATION
  Report Type: Report from Study
  Country: US (occurrence: US)
  Receive Date: 20171207
  Receipt Date: 20180215
  Transmission Date: 20180508
  Serious: No
  Sender: FDA-Public Use
  Company Number: PHEH2017US039429

PATIENT
  Age: 73 Year
  Sex: Female

DRUGS (2)
  1. AFINITOR [Suspect]
     Active Substance: EVEROLIMUS
     Indication: HEPATIC CANCER
     Dosage: 10 MG/KG QD
     Route: 048
     Dates: start: 20170109
  2. AFINITOR [Suspect]
     Active Substance: EVEROLIMUS
     Indication: HEPATOCELLULAR CARCINOMA

REACTIONS (6)
  - Hypoacusis [Unknown]
  - Abdominal discomfort [Unknown]
  - Amnesia [Unknown]
  - Product packaging issue [Unknown]
  - Influenza [Unknown]
  - Product physical issue [Unknown]

NARRATIVE: CASE EVENT DATE: 20171225
